FAERS Safety Report 6897410-X (Version None)
Quarter: 2010Q3

REPORT INFORMATION
  Report Type: 
  Country: None (occurrence: None)
  Receive Date: 20100802
  Receipt Date: 20070523
  Transmission Date: 20110219
  Serious: No
  Sender: FDA-Public Use
  Company Number: US-PFIZER INC-2007042616

PATIENT
  Sex: Female
  Weight: 68 kg

DRUGS (5)
  1. LYRICA [Suspect]
     Indication: MIGRAINE
     Dates: start: 20060101, end: 20070522
  2. THYROID TAB [Concomitant]
  3. ESTROGENS SOL/INJ [Concomitant]
  4. ANTIDEPRESSANTS [Concomitant]
  5. LIPITOR [Concomitant]

REACTIONS (5)
  - ABDOMINAL DISCOMFORT [None]
  - DIZZINESS [None]
  - MUSCULOSKELETAL STIFFNESS [None]
  - NAUSEA [None]
  - SOMNOLENCE [None]
